FAERS Safety Report 16597493 (Version 1)
Quarter: 2019Q3

REPORT INFORMATION
  Report Type: Spontaneous
  Country: US (occurrence: US)
  Receive Date: 20190718
  Receipt Date: 20190718
  Transmission Date: 20191004
  Serious: Yes (Other)
  Sender: FDA-Public Use
  Company Number: None

PATIENT
  Age: 56 Year
  Sex: Male
  Weight: 70 kg

DRUGS (2)
  1. METOCLOPRAMIDE. [Suspect]
     Active Substance: METOCLOPRAMIDE
     Indication: IMPAIRED GASTRIC EMPTYING
     Route: 040
     Dates: start: 20190708, end: 20190710
  2. BENADRYL [Concomitant]
     Active Substance: DIPHENHYDRAMINE HYDROCHLORIDE
     Dates: start: 20190713, end: 20190715

REACTIONS (5)
  - Neuroleptic malignant syndrome [None]
  - Tachycardia [None]
  - Tension [None]
  - Gaze palsy [None]
  - Pyrexia [None]

NARRATIVE: CASE EVENT DATE: 20190709
